FAERS Safety Report 8901021 (Version 1)
Quarter: 2012Q4

REPORT INFORMATION
  Report Type: 
  Country: BR (occurrence: BR)
  Receive Date: 20121109
  Receipt Date: 20121109
  Transmission Date: 20130627
  Serious: Yes (Other)
  Sender: FDA-Public Use
  Company Number: BR-BRISTOL-MYERS SQUIBB COMPANY-17090184

PATIENT
  Age: 58 Year
  Sex: Female

DRUGS (6)
  1. ONGLYZA TABS 5 MG [Suspect]
     Indication: DIABETES MELLITUS
     Dosage: 2 years ago at a dosage of 5 mg/day,Dose incd to 2 tablets of 5 mg/day 4months ago
     Route: 048
  2. GLIBENCLAMIDE [Concomitant]
     Dosage: for about 8 or 10 years
  3. CELEBRA [Concomitant]
  4. MORPHINE [Concomitant]
     Dosage: Dimorf
  5. ATENOLOL [Concomitant]
  6. FOLIC ACID [Concomitant]
     Dosage: interrupted 1 week ago in Oct-2012

REACTIONS (3)
  - Lung neoplasm malignant [Unknown]
  - Diabetes mellitus [Unknown]
  - Overdose [Unknown]
